FAERS Safety Report 7397385 (Version 3)
Quarter: 2013Q2

REPORT INFORMATION
  Report Type: Report from Study
  Country: US (occurrence: US)
  Receive Date: 20100524
  Receipt Date: 20130528
  Transmission Date: 20140414
  Serious: Yes (Other)
  Sender: FDA-Public Use
  Company Number: US-RB-020421-09

PATIENT
  Age: 49 Year
  Sex: Male

DRUGS (6)
  1. SUBOXONE TABLET [Suspect]
     Indication: DRUG DEPENDENCE
     Route: 060
     Dates: start: 200907, end: 200909
  2. SUBOXONE TABLET [Suspect]
     Indication: ARTHRALGIA
     Dosage: TAPER DOWN TO 12 MG/DAILY
     Route: 060
     Dates: start: 200909, end: 2010
  3. SUBOXONE TABLET [Suspect]
     Route: 060
     Dates: start: 2010, end: 20100513
  4. ZOLOFT [Concomitant]
     Indication: DEPRESSION
     Route: 065
  5. LAMOTRIGINE [Concomitant]
     Indication: CONVULSION
     Route: 065
  6. LAMICTAL [Concomitant]
     Indication: CONVULSION
     Route: 065

REACTIONS (5)
  - Convulsion [Recovered/Resolved]
  - Insomnia [Recovered/Resolved]
  - Therapeutic response unexpected [Not Recovered/Not Resolved]
  - Ear neoplasm [Recovered/Resolved]
  - Drug ineffective for unapproved indication [Unknown]
